FAERS Safety Report 4323149-0 (Version None)
Quarter: 2004Q1

REPORT INFORMATION
  Report Type: 
  Country: None (occurrence: None)
  Receive Date: 20040322
  Receipt Date: 20040310
  Transmission Date: 20041129
  Serious: Yes (Other)
  Sender: FDA-Public Use
  Company Number: S04-USA-01394-02

PATIENT
  Age: 20 Month
  Sex: Male

DRUGS (2)
  1. CELEXA [Suspect]
     Indication: DEPRESSION
     Dosage: 10 MG QD TRANSPLACENTAL
     Route: 064
     Dates: start: 19991101, end: 20000801
  2. SERZONE [Concomitant]

REACTIONS (4)
  - AUTISM [None]
  - MATERNAL DRUGS AFFECTING FOETUS [None]
  - PERVASIVE DEVELOPMENTAL DISORDER [None]
  - PREMATURE BABY [None]
